FAERS Safety Report 9868610 (Version 4)
Quarter: 2014Q1

REPORT INFORMATION
  Report Type: Report from Study
  Country: DE (occurrence: DE)
  Receive Date: 20140204
  Receipt Date: 20140320
  Transmission Date: 20141002
  Serious: Yes (Hospitalization)
  Sender: FDA-Public Use
  Company Number: PHHO2014DE001546

PATIENT
  Sex: 0

DRUGS (5)
  1. MIDOSTAURIN [Suspect]
     Indication: ACUTE MYELOID LEUKAEMIA
     Dosage: 25 MG, EVERY SECOND DAY
     Dates: start: 20131125, end: 20131213
  2. ACICLOVIR [Suspect]
  3. BUDESONIDE SANDOZ [Suspect]
  4. TACROLIMUS [Suspect]
  5. AMLODIPINE [Suspect]

REACTIONS (1)
  - Colitis [Recovered/Resolved]
